FAERS Safety Report 9946603 (Version 1)
Quarter: 2014Q1

REPORT INFORMATION
  Report Type: Spontaneous
  Country: US (occurrence: US)
  Receive Date: 20140303
  Receipt Date: 20140303
  Transmission Date: 20141002
  Serious: No
  Sender: FDA-Public Use
  Company Number: US-AMGEN-USASP2014006802

PATIENT
  Sex: Female
  Weight: 63.49 kg

DRUGS (1)
  1. ENBREL [Suspect]
     Indication: PSORIASIS
     Dosage: UNK UNK, 3 TIMES/WK
     Route: 065
     Dates: start: 2008, end: 2010

REACTIONS (2)
  - Drug ineffective [Recovered/Resolved]
  - Condition aggravated [Unknown]
